FAERS Safety Report 7236050-X (Version None)
Quarter: 2011Q1

REPORT INFORMATION
  Report Type: 
  Country: None (occurrence: None)
  Receive Date: 20110120
  Receipt Date: 20110111
  Transmission Date: 20110831
  Serious: Yes (Hospitalization)
  Sender: FDA-Public Use
  Company Number: US-JNJFOC-20100706893

PATIENT
  Sex: Male
  Weight: 12.5 kg

DRUGS (12)
  1. INFLIXIMAB [Suspect]
     Route: 042
  2. ANTIBIOTICS [Concomitant]
     Indication: INFLAMMATORY BOWEL DISEASE
  3. DEXTRAN INJ [Concomitant]
  4. PROBIOTICS [Concomitant]
  5. FERROUS SULFATE [Concomitant]
  6. INFLIXIMAB [Suspect]
     Route: 042
  7. INFLIXIMAB [Suspect]
     Route: 042
  8. MULTI-VITAMINS [Concomitant]
  9. PREDNISONE [Concomitant]
  10. PREVACID [Concomitant]
  11. INFLIXIMAB [Suspect]
     Indication: CROHN'S DISEASE
     Route: 042
  12. MESALAMINE [Concomitant]
     Route: 054

REACTIONS (1)
  - CROHN'S DISEASE [None]
